FAERS Safety Report 18239024 (Version 1)
Quarter: 2020Q3

REPORT INFORMATION
  Report Type: Spontaneous
  Country: US (occurrence: US)
  Receive Date: 20200907
  Receipt Date: 20200907
  Transmission Date: 20201103
  Serious: No
  Sender: FDA-Public Use
  Company Number: US-TEVA-2020-US-1826082

PATIENT
  Age: 91 Year
  Sex: Male
  Weight: 83.45 kg

DRUGS (28)
  1. CLOPIDOGREL [Concomitant]
     Active Substance: CLOPIDOGREL BISULFATE
     Dates: start: 2014
  2. SENNOKOTT [Concomitant]
     Active Substance: SENNOSIDES A AND B
     Dates: start: 2014
  3. FISH OIL OMEGA 3 [Concomitant]
     Active Substance: FISH OIL
     Dates: start: 2014
  4. VITAMIN B3 [Concomitant]
     Active Substance: NIACIN
     Dates: start: 2014
  5. PANTOPRAZOLE [Concomitant]
     Active Substance: PANTOPRAZOLE
     Dates: start: 2014
  6. GLUCOSAMINE CHONDROITIN [Concomitant]
     Active Substance: CHONDROITIN SULFATE (BOVINE)\GLUCOSAMINE HYDROCHLORIDE
     Dates: start: 2014
  7. ALLOPURINOL. [Concomitant]
     Active Substance: ALLOPURINOL
     Dates: start: 2014
  8. GLIPIZIDE. [Concomitant]
     Active Substance: GLIPIZIDE
     Dates: start: 2014
  9. ATORVASTATIN [Concomitant]
     Active Substance: ATORVASTATIN
     Dates: start: 2014
  10. TAMSULOSIN [Concomitant]
     Active Substance: TAMSULOSIN
     Dates: start: 2014
  11. SENNOKOTT [Concomitant]
     Active Substance: SENNOSIDES A AND B
     Dates: start: 2014
  12. CLOPIDOGREL [Concomitant]
     Active Substance: CLOPIDOGREL BISULFATE
     Dates: start: 2014
  13. ASPIRIN 81 [Concomitant]
     Active Substance: ASPIRIN
     Dates: start: 2014
  14. DIPHENHYDRAMINE. [Concomitant]
     Active Substance: DIPHENHYDRAMINE
     Dates: start: 2018
  15. FISH OIL OMEGA 3 [Concomitant]
     Active Substance: FISH OIL
     Dates: start: 2014
  16. VITAMIN C [Concomitant]
     Active Substance: ASCORBIC ACID
     Dates: start: 2014
  17. FEXOFENADINE [Suspect]
     Active Substance: FEXOFENADINE HYDROCHLORIDE
     Indication: RHINORRHOEA
     Dosage: 180 MILLIGRAM DAILY; DOSE: 180 MG 571 TABLET
     Route: 048
     Dates: start: 202008, end: 202008
  18. FINASTERIDE. [Concomitant]
     Active Substance: FINASTERIDE
     Dates: start: 2014
  19. GLIPIZIDE. [Concomitant]
     Active Substance: GLIPIZIDE
     Dates: start: 2014
  20. TAMSULOSIN [Concomitant]
     Active Substance: TAMSULOSIN
     Dates: start: 2014
  21. ASPIRIN 81 [Concomitant]
     Active Substance: ASPIRIN
     Dates: start: 2014
  22. DIPHENHYDRAMINE. [Concomitant]
     Active Substance: DIPHENHYDRAMINE
     Dates: start: 2014
  23. VITAMIN B12 [Concomitant]
     Active Substance: CYANOCOBALAMIN
  24. FINASTERIDE. [Concomitant]
     Active Substance: FINASTERIDE
     Dates: start: 2014
  25. ALLOPURINOL. [Concomitant]
     Active Substance: ALLOPURINOL
     Dates: start: 2014
  26. ATORVASTATIN [Concomitant]
     Active Substance: ATORVASTATIN
     Dates: start: 2014
  27. FERREX [Concomitant]
     Active Substance: FERRIC POLYSACCHARIDE COMPLEX
     Dates: start: 2020
  28. MIRALAX [Concomitant]
     Active Substance: POLYETHYLENE GLYCOL 3350
     Dates: start: 2014

REACTIONS (3)
  - Wrong technique in product usage process [Unknown]
  - Drug ineffective [Unknown]
  - Expired product administered [Unknown]

NARRATIVE: CASE EVENT DATE: 202008
